FAERS Safety Report 4702860-3 (Version None)
Quarter: 2005Q2

REPORT INFORMATION
  Report Type: 
  Country: None (occurrence: None)
  Receive Date: 20050629
  Receipt Date: 20040211
  Transmission Date: 20051028
  Serious: Yes (Death, Life-Threatening, Hospitalization)
  Sender: FDA-Public Use
  Company Number: US-ABBOTT-04P-163-0250211-00

PATIENT
  Sex: Male

DRUGS (11)
  1. RITONAVIR SOFT GELATIN CAPSULES [Suspect]
     Indication: HIV INFECTION
     Route: 048
     Dates: start: 20030617, end: 20040129
  2. TIPRANAVIR [Concomitant]
     Indication: HIV INFECTION
     Route: 048
     Dates: start: 20031113, end: 20040129
  3. LAMIVUDINE [Concomitant]
     Indication: HIV INFECTION
     Route: 048
     Dates: start: 20000518, end: 20040127
  4. TENOFOVIR [Concomitant]
     Indication: HIV INFECTION
     Route: 048
     Dates: start: 20000518, end: 20040129
  5. ABACAVIR [Concomitant]
     Indication: HIV INFECTION
     Route: 048
     Dates: start: 20030617, end: 20040129
  6. ROFECOXIB [Concomitant]
     Indication: BACK PAIN
     Route: 048
     Dates: start: 20040122, end: 20040306
  7. FENTANYL [Concomitant]
     Indication: ABDOMINAL PAIN
     Route: 061
     Dates: start: 20031231, end: 20040306
  8. FUROSEMIDE [Concomitant]
     Indication: OEDEMA
     Route: 048
     Dates: start: 20040128, end: 20040128
  9. AMIKACIN [Concomitant]
     Indication: MYCOBACTERIUM AVIUM COMPLEX INFECTION
     Dates: start: 20040120, end: 20040128
  10. RITONAVIR [Concomitant]
     Indication: HIV INFECTION
     Route: 048
     Dates: start: 20030617, end: 20040129
  11. OXYCOCET [Concomitant]
     Indication: PAIN
     Dates: start: 20030421

REACTIONS (8)
  - ACQUIRED IMMUNODEFICIENCY SYNDROME [None]
  - ANAEMIA [None]
  - CARDIO-RESPIRATORY ARREST [None]
  - DISEASE PROGRESSION [None]
  - HIV INFECTION [None]
  - MYCOBACTERIAL INFECTION [None]
  - NEPHROPATHY TOXIC [None]
  - RENAL FAILURE [None]
